FAERS Safety Report 12755732 (Version 17)
Quarter: 2018Q1

REPORT INFORMATION
  Report Type: Spontaneous
  Country: US (occurrence: US)
  Receive Date: 20160916
  Receipt Date: 20180307
  Transmission Date: 20180508
  Serious: Yes (Hospitalization, Other)
  Sender: FDA-Public Use
  Company Number: US-PFIZER INC-2016430593

PATIENT
  Age: 42 Year
  Sex: Male
  Weight: 77.98 kg

DRUGS (1)
  1. CHANTIX [Suspect]
     Active Substance: VARENICLINE TARTRATE
     Indication: SMOKING CESSATION THERAPY
     Dosage: UNK
     Dates: start: 201411, end: 2014

REACTIONS (13)
  - Aggression [Recovered/Resolved]
  - Feeding disorder [Recovered/Resolved]
  - Physical assault [Recovered/Resolved]
  - Toxicity to various agents [Recovered/Resolved]
  - Amnesia [Recovered/Resolved]
  - Flashback [Not Recovered/Not Resolved]
  - Dyspepsia [Not Recovered/Not Resolved]
  - Psychotic disorder [Recovered/Resolved]
  - Anger [Recovered/Resolved]
  - Anxiety [Not Recovered/Not Resolved]
  - Depression [Recovered/Resolved]
  - Confusional state [Recovered/Resolved]
  - Hand fracture [Recovered/Resolved]

NARRATIVE: CASE EVENT DATE: 2014
